FAERS Safety Report 5224611-9 (Version None)
Quarter: 2007Q1

REPORT INFORMATION
  Report Type: 
  Country: None (occurrence: None)
  Receive Date: 20061201
  Receipt Date: 20060823
  Transmission Date: 20070707
  Serious: No
  Sender: FDA-Public Use
  Company Number: 2006PV019993

PATIENT
  Age: 68 Year
  Sex: Female

DRUGS (7)
  1. BYETTA [Suspect]
     Indication: DIABETES MELLITUS NON-INSULIN-DEPENDENT
     Dosage: 10 MCG;QD;5 MCG;BID;5 MCG;QD;10 MCG;BID;SC
     Route: 058
     Dates: start: 20060608, end: 20060621
  2. BYETTA [Suspect]
     Indication: DIABETES MELLITUS NON-INSULIN-DEPENDENT
     Dosage: 10 MCG;QD;5 MCG;BID;5 MCG;QD;10 MCG;BID;SC
     Route: 058
     Dates: start: 20060622, end: 20060712
  3. BYETTA [Suspect]
     Indication: DIABETES MELLITUS NON-INSULIN-DEPENDENT
     Dosage: 10 MCG;QD;5 MCG;BID;5 MCG;QD;10 MCG;BID;SC
     Route: 058
     Dates: start: 20060713, end: 20060719
  4. BYETTA [Suspect]
     Indication: DIABETES MELLITUS NON-INSULIN-DEPENDENT
     Dosage: 10 MCG;QD;5 MCG;BID;5 MCG;QD;10 MCG;BID;SC
     Route: 058
     Dates: start: 20060720
  5. GLYBURIDE [Concomitant]
  6. AVANDIA [Concomitant]
  7. PRANDIN [Concomitant]

REACTIONS (9)
  - BLOOD GLUCOSE INCREASED [None]
  - DIARRHOEA [None]
  - DIZZINESS [None]
  - FEELING HOT [None]
  - HEADACHE [None]
  - INJECTION SITE DISCOMFORT [None]
  - NAUSEA [None]
  - VOMITING [None]
  - WEIGHT DECREASED [None]
